FAERS Safety Report 9439252 (Version 4)
Quarter: 2014Q2

REPORT INFORMATION
  Report Type: Report from Study
  Country: BR (occurrence: BR)
  Receive Date: 20130804
  Receipt Date: 20140602
  Transmission Date: 20141212
  Serious: Yes (Death, Life-Threatening, Hospitalization)
  Sender: FDA-Public Use
  Company Number: BR-ROCHE-1256218

PATIENT
  Age: 47 Year
  Sex: Female

DRUGS (6)
  1. ACTEMRA [Suspect]
     Indication: RHEUMATOID ARTHRITIS
     Dosage: MOST RECENT DOSE PRIOR TO ADVERSE EVENT : 10/SEP/2013
     Route: 065
     Dates: start: 20110912, end: 201308
  2. ACTEMRA [Suspect]
     Route: 065
     Dates: start: 20130912
  3. CARDIZEM [Concomitant]
  4. METICORTEN [Concomitant]
  5. NEXIUM [Concomitant]
  6. AEROLIN [Concomitant]

REACTIONS (6)
  - Asthma [Fatal]
  - Pneumonia [Fatal]
  - Sinusitis [Recovering/Resolving]
  - Toxoplasmosis [Recovered/Resolved]
  - Keratitis [Not Recovered/Not Resolved]
  - Dry eye [Unknown]
